FAERS Safety Report 16802852 (Version 1)
Quarter: 2019Q3

REPORT INFORMATION
  Report Type: Spontaneous
  Country: JP (occurrence: JP)
  Receive Date: 20190913
  Receipt Date: 20190913
  Transmission Date: 20191005
  Serious: Yes (Hospitalization)
  Sender: FDA-Public Use
  Company Number: JP-TAKEDA-2019TJP018407AA

PATIENT
  Age: 76 Year
  Sex: Female

DRUGS (14)
  1. LUSEFI [Concomitant]
     Active Substance: LUSEOGLIFLOZIN
     Indication: DIABETES MELLITUS
     Dosage: 2.5 MILLIGRAM, QD
     Route: 048
  2. EXELON [Concomitant]
     Active Substance: RIVASTIGMINE TARTRATE
     Indication: DEMENTIA
     Dosage: 4.5 MILLIGRAM, QD
     Route: 065
     Dates: end: 20190807
  3. NAUZELIN [Concomitant]
     Active Substance: DOMPERIDONE
     Dosage: UNK
     Route: 048
  4. MAGNESIUM OXIDE. [Concomitant]
     Active Substance: MAGNESIUM OXIDE
     Indication: CONSTIPATION
     Dosage: 330 MILLIGRAM, TID
     Route: 048
  5. SENNARIDE [Concomitant]
     Active Substance: SENNOSIDES A AND B
     Indication: CONSTIPATION
     Dosage: 12 MILLIGRAM, QD
     Route: 048
  6. DEPAS [Concomitant]
     Indication: ANXIETY
     Dosage: 0.5 MILLIGRAM, BID
     Route: 048
     Dates: end: 20190827
  7. ZAFATEK TABLETS 100 MG [Suspect]
     Active Substance: TRELAGLIPTIN SUCCINATE
     Indication: DIABETES MELLITUS
     Dosage: 100 MILLIGRAM, 1/WEEK
     Route: 048
  8. AMLODIN [Concomitant]
     Active Substance: AMLODIPINE BESYLATE
     Indication: HYPERTENSION
     Dosage: 2.5 MILLIGRAM, BID
     Route: 048
  9. MYSLEE [Concomitant]
     Active Substance: ZOLPIDEM TARTRATE
     Indication: INSOMNIA
     Dosage: 5 MILLIGRAM, QD
     Route: 048
  10. ROSUVASTATIN                       /01588602/ [Concomitant]
     Active Substance: ROSUVASTATIN CALCIUM
     Indication: HYPERLIPIDAEMIA
     Dosage: 5 MILLIGRAM, QD
     Route: 048
  11. GLYCYRON                           /00466401/ [Concomitant]
     Dosage: UNK
     Route: 048
  12. VONOPRAZAN FUMARATE [Concomitant]
     Active Substance: VONOPRAZAN FUMURATE
     Indication: HELICOBACTER INFECTION
     Dosage: UNK
     Route: 065
  13. TAKECAB [Concomitant]
     Active Substance: VONOPRAZAN FUMURATE
     Indication: GASTRITIS
     Dosage: 20 MILLIGRAM, QD
     Route: 048
  14. NESINA [Suspect]
     Active Substance: ALOGLIPTIN BENZOATE
     Indication: DIABETES MELLITUS
     Dosage: UNK
     Route: 065

REACTIONS (3)
  - Muscular weakness [Unknown]
  - Hospitalisation [Unknown]
  - Gastroenteritis [Recovered/Resolved]

NARRATIVE: CASE EVENT DATE: 20190527
